FAERS Safety Report 10019119 (Version 1)
Quarter: 2014Q1

REPORT INFORMATION
  Report Type: Spontaneous
  Country: US (occurrence: US)
  Receive Date: 20140318
  Receipt Date: 20140318
  Transmission Date: 20141002
  Serious: No
  Sender: FDA-Public Use
  Company Number: US-BAUSCH-BL-2014-000676

PATIENT
  Sex: Female

DRUGS (2)
  1. BACITRACIN ZINC AND POLYMYXIN B SULFATE OPHTHALMIC OINTMENT USP [Suspect]
     Indication: OCULAR HYPERAEMIA
     Dosage: UNKNOWN
     Route: 047
  2. REFRESH DROPS [Suspect]
     Indication: DRY EYE
     Dosage: UNKNOWN
     Route: 047

REACTIONS (2)
  - Dry eye [Not Recovered/Not Resolved]
  - Ocular hyperaemia [Not Recovered/Not Resolved]
